FAERS Safety Report 20152999 (Version 1)
Quarter: 2021Q4

REPORT INFORMATION
  Report Type: Spontaneous
  Country: CO (occurrence: CO)
  Receive Date: 20211206
  Receipt Date: 20211206
  Transmission Date: 20220303
  Serious: No
  Sender: FDA-Public Use
  Company Number: CO-PFIZER INC-2021630459

PATIENT
  Age: 13 Year
  Sex: Female

DRUGS (1)
  1. GENOTROPIN [Suspect]
     Active Substance: SOMATROPIN
     Dosage: 2.4 MG, DAILY
     Route: 058
     Dates: end: 20210527

REACTIONS (5)
  - Device occlusion [Unknown]
  - Drug dose omission by device [Unknown]
  - Needle issue [Unknown]
  - Injection site haemorrhage [Unknown]
  - Expired device used [Unknown]

NARRATIVE: CASE EVENT DATE: 20210527
